FAERS Safety Report 5068276-8 (Version None)
Quarter: 2006Q3

REPORT INFORMATION
  Report Type: 
  Country: None (occurrence: None)
  Receive Date: 20060802
  Receipt Date: 20050708
  Transmission Date: 20061208
  Serious: No
  Sender: FDA-Public Use
  Company Number: US-BRISTOL-MYERS SQUIBB COMPANY-13030986

PATIENT
  Age: 93 Year
  Sex: Female

DRUGS (1)
  1. COUMADIN [Suspect]
     Indication: CEREBROVASCULAR ACCIDENT
     Route: 048

REACTIONS (5)
  - AGITATION [None]
  - DYSPHAGIA [None]
  - DYSPHASIA [None]
  - INTERNATIONAL NORMALISED RATIO ABNORMAL [None]
  - TREMOR [None]
